FAERS Safety Report 8819164 (Version 1)
Quarter: 2012Q4

REPORT INFORMATION
  Report Type: 
  Country: US (occurrence: US)
  Receive Date: 20121001
  Receipt Date: 20121001
  Transmission Date: 20130627
  Serious: No
  Sender: FDA-Public Use
  Company Number: US-PFIZER INC-2012241872

PATIENT
  Age: 43 Year
  Sex: Female
  Weight: 86.17 kg

DRUGS (2)
  1. EFFEXOR [Suspect]
     Indication: HOT FLUSH
     Dosage: 75 mg, 1x/day
     Route: 048
     Dates: start: 200708
  2. EFFEXOR [Suspect]
     Dosage: UNK, 1x/day
     Route: 048
     Dates: end: 20120831

REACTIONS (2)
  - Diarrhoea [Not Recovered/Not Resolved]
  - Off label use [Unknown]
